FAERS Safety Report 7530183-6 (Version None)
Quarter: 2011Q2

REPORT INFORMATION
  Report Type: 
  Country: None (occurrence: None)
  Receive Date: 20110607
  Receipt Date: 20110527
  Transmission Date: 20111010
  Serious: Yes (Other)
  Sender: FDA-Public Use
  Company Number: PHHY2010GB87650

PATIENT
  Age: 56 Year
  Sex: Female

DRUGS (6)
  1. PRAVASTATIN [Concomitant]
     Dosage: 10 MG, UNK
  2. SIMVASTATIN [Suspect]
     Dosage: 40 MG, UNK
  3. ATORVASTATIN [Suspect]
     Dosage: 10 MG, UNK
  4. FENOFIBRATE [Concomitant]
     Dosage: 160 MG, UNK
  5. PRAVASTATIN [Concomitant]
     Dosage: 20 MG, UNK
  6. METFORMIN HCL [Suspect]
     Dosage: 2 G, UNK

REACTIONS (4)
  - HIGH DENSITY LIPOPROTEIN DECREASED [None]
  - METABOLIC SYNDROME [None]
  - APOLIPOPROTEIN A-I DECREASED [None]
  - MYALGIA [None]
